FAERS Safety Report 8036064-6 (Version None)
Quarter: 2012Q1

REPORT INFORMATION
  Report Type: 
  Country: None (occurrence: None)
  Receive Date: 20120111
  Receipt Date: 20120103
  Transmission Date: 20120608
  Serious: Yes (Hospitalization)
  Sender: FDA-Public Use
  Company Number: PR-AMGEN-USACT2012000169

PATIENT
  Age: 84 Year
  Sex: Male

DRUGS (5)
  1. NORVASC [Concomitant]
  2. DENOSUMAB [Suspect]
     Indication: PROSTATE CANCER
     Dates: start: 20070628
  3. BICITRA [Concomitant]
  4. HYZAAR [Concomitant]
  5. PERCOCET [Concomitant]

REACTIONS (3)
  - CELLULITIS [None]
  - CHEST PAIN [None]
  - DEVICE RELATED INFECTION [None]
